FAERS Safety Report 11935537 (Version 1)
Quarter: 2016Q1

REPORT INFORMATION
  Report Type: Spontaneous
  Country: US (occurrence: US)
  Receive Date: 20160121
  Receipt Date: 20160121
  Transmission Date: 20160526
  Serious: Yes (Other)
  Sender: FDA-Public Use
  Company Number: US-TEVA-563642USA

PATIENT
  Age: 20 Year
  Sex: Male

DRUGS (3)
  1. PROPOFOL. [Suspect]
     Active Substance: PROPOFOL
     Indication: ENDOSCOPY
     Route: 042
     Dates: start: 20150416
  2. VERSED [Concomitant]
     Active Substance: MIDAZOLAM HYDROCHLORIDE
  3. FENTANYL. [Concomitant]
     Active Substance: FENTANYL

REACTIONS (6)
  - Skin abrasion [Unknown]
  - Mental status changes [Unknown]
  - Drug effect decreased [Unknown]
  - Aggression [Recovering/Resolving]
  - Supraventricular tachycardia [Unknown]
  - Agitation [Recovering/Resolving]

NARRATIVE: CASE EVENT DATE: 20150416
